FAERS Safety Report 12592182 (Version 1)
Quarter: 2016Q3

REPORT INFORMATION
  Report Type: Spontaneous
  Country: US (occurrence: US)
  Receive Date: 20160726
  Receipt Date: 20160726
  Transmission Date: 20161109
  Serious: No
  Sender: FDA-Public Use
  Company Number: US-TEVA-647196USA

PATIENT
  Age: 48 Year
  Sex: Female
  Weight: 68.1 kg

DRUGS (1)
  1. METOCLOPRAMIDE. [Suspect]
     Active Substance: METOCLOPRAMIDE
     Dosage: 1 DOSE
     Dates: start: 20160314, end: 20160314

REACTIONS (3)
  - Akathisia [Unknown]
  - Tremor [Recovered/Resolved]
  - Anxiety [Unknown]

NARRATIVE: CASE EVENT DATE: 20160314
